FAERS Safety Report 12864419 (Version 2)
Quarter: 2016Q4

REPORT INFORMATION
  Report Type: Spontaneous
  Country: JP (occurrence: JP)
  Receive Date: 20161020
  Receipt Date: 20161117
  Transmission Date: 20170207
  Serious: No
  Sender: FDA-Public Use
  Company Number: JP-AMGEN-JPNSP2016145564

PATIENT
  Sex: Male

DRUGS (5)
  1. 5-FU                               /00098801/ [Concomitant]
     Active Substance: FLUOROURACIL
     Indication: COLON CANCER
     Dosage: UNK
     Route: 040
  2. 5-FU                               /00098801/ [Concomitant]
     Active Substance: FLUOROURACIL
     Dosage: UNK
     Route: 041
  3. OXALIPLATIN. [Concomitant]
     Active Substance: OXALIPLATIN
     Indication: COLON CANCER
     Dosage: UNK
     Route: 041
  4. VECTIBIX [Suspect]
     Active Substance: PANITUMUMAB
     Indication: COLON CANCER
     Dosage: 6 MG/KG, Q2WK
     Route: 041
  5. CALCIUM FOLINATE [Concomitant]
     Active Substance: LEUCOVORIN CALCIUM
     Indication: COLON CANCER
     Dosage: UNK
     Route: 041

REACTIONS (1)
  - Genital erosion [Recovering/Resolving]

NARRATIVE: CASE EVENT DATE: 20160905
